FAERS Safety Report 5015762-2 (Version None)
Quarter: 2006Q2

REPORT INFORMATION
  Report Type: 
  Country: None (occurrence: None)
  Receive Date: 20060525
  Receipt Date: 20060503
  Transmission Date: 20061013
  Serious: Yes (Hospitalization)
  Sender: FDA-Public Use
  Company Number: NZ200605002472

PATIENT

DRUGS (3)
  1. ZYPREXA [Suspect]
     Dosage: TRANSPLACENTAL
     Route: 064
     Dates: start: 20050801, end: 20060401
  2. FLUOXETINE [Concomitant]
  3. IRON (IRON) [Concomitant]

REACTIONS (8)
  - CAESAREAN SECTION [None]
  - DRUG EXPOSURE DURING PREGNANCY [None]
  - DRUG EXPOSURE VIA BREAST MILK [None]
  - HAEMORRHAGE [None]
  - JAUNDICE NEONATAL [None]
  - PLACENTA PRAEVIA [None]
  - PREMATURE BABY [None]
  - RESPIRATORY DISORDER NEONATAL [None]
